FAERS Safety Report 8723979 (Version 2)
Quarter: 2012Q4

REPORT INFORMATION
  Report Type: 
  Country: US (occurrence: US)
  Receive Date: 20120815
  Receipt Date: 20120917
  Transmission Date: 20130627
  Serious: Yes (Other)
  Sender: FDA-Public Use
  Company Number: US-ASTRAZENECA-2012SE55297

PATIENT
  Age: 76 Year
  Sex: Male
  Weight: 79.8 kg

DRUGS (9)
  1. CRESTOR [Suspect]
     Indication: LIPIDS ABNORMAL
     Route: 048
     Dates: start: 20060607
  2. CRESTOR [Suspect]
     Indication: LIPIDS ABNORMAL
     Route: 048
     Dates: start: 20120419
  3. CALCIUM [Concomitant]
  4. FOSAMAX [Concomitant]
  5. PLAVIX [Concomitant]
  6. NITROGLYCERINE [Concomitant]
     Route: 060
  7. MVI [Concomitant]
  8. LEVOTHYROXINE [Concomitant]
  9. ASPIRIN [Concomitant]

REACTIONS (5)
  - Cerebrovascular accident [Unknown]
  - Chest pain [Unknown]
  - Lipids increased [Unknown]
  - Blood cholesterol increased [Unknown]
  - Intentional drug misuse [Unknown]
